FAERS Safety Report 9737146 (Version 1)
Quarter: 2013Q4

REPORT INFORMATION
  Report Type: Report from Study
  Country: CR (occurrence: CR)
  Receive Date: 20131206
  Receipt Date: 20131206
  Transmission Date: 20140711
  Serious: Yes (Death)
  Sender: FDA-Public Use
  Company Number: CR-ASTRAZENECA-2013SE88684

PATIENT
  Sex: Male

DRUGS (3)
  1. NEXIUM [Suspect]
     Route: 048
     Dates: start: 20130313
  2. CRESTOR [Concomitant]
     Route: 048
  3. ATACAND PLUS [Concomitant]
     Route: 048

REACTIONS (1)
  - Death [Fatal]
